FAERS Safety Report 10072497 (Version 2)
Quarter: 2014Q2

REPORT INFORMATION
  Report Type: Spontaneous
  Country: US (occurrence: None)
  Receive Date: 20140409
  Receipt Date: 20140421
  Transmission Date: 20141212
  Serious: No
  Sender: FDA-Public Use
  Company Number: UCM201403-000037

PATIENT
  Age: 65 Year
  Sex: Female
  Weight: 85 kg

DRUGS (13)
  1. DIVALPROEX SODIUM [Suspect]
     Indication: PROPHYLAXIS
  2. WARFARIN [Suspect]
     Indication: COAGULOPATHY
  3. BOTULINUM TOXIN A [Concomitant]
  4. METFORMIN [Concomitant]
  5. AMITRIPTYLINE [Concomitant]
  6. IRBESARTAN [Concomitant]
  7. BISACODYL [Concomitant]
  8. DOCUSATE SODIUM [Concomitant]
  9. DIGOXIN [Concomitant]
  10. CENTRUM (MULTIVITAMIN) [Concomitant]
  11. CALCIUM CARBONATE/VITAMIN D3 [Concomitant]
  12. PAROXETINE [Concomitant]
  13. SIMVASTATIN [Concomitant]

REACTIONS (4)
  - International normalised ratio increased [None]
  - Fatigue [None]
  - Drug interaction [None]
  - Therapy cessation [None]
